FAERS Safety Report 12242270 (Version 3)
Quarter: 2016Q2

REPORT INFORMATION
  Report Type: Spontaneous
  Country: CH (occurrence: PL)
  Receive Date: 20160406
  Receipt Date: 20160627
  Transmission Date: 20160815
  Serious: Yes (Death, Congenital Anomaly)
  Sender: FDA-Public Use
  Company Number: CH-LPDUSPRD-20160284

PATIENT
  Age: 1 Day
  Sex: Male
  Weight: .5 kg

DRUGS (5)
  1. AMLODIPINE [Concomitant]
     Active Substance: AMLODIPINE BESYLATE
     Dosage: 5 MG (5 MG, 1 IN 1 D)
     Route: 064
     Dates: start: 201504
  2. NEORECORMON [Concomitant]
     Active Substance: ERYTHROPOIETIN
     Dosage: 8,000 IU, 1 IN 1 WEEK
     Route: 064
  3. HEPARIN [Concomitant]
     Active Substance: HEPARIN SODIUM
     Dosage: SEE NARRATIVE
     Route: 064
  4. VENOFER [Suspect]
     Active Substance: IRON SUCROSE
     Dosage: 100 MG, 1 IN 1 WEEK
     Route: 064
     Dates: start: 20150708
  5. ACIDUM [Concomitant]
     Dosage: 15 MG (15 MG, 1 IN 1 D)
     Route: 064
     Dates: start: 201507

REACTIONS (3)
  - Umbilical cord vascular disorder [Not Recovered/Not Resolved]
  - Foetal exposure during pregnancy [Unknown]
  - Foetal growth restriction [Fatal]
